FAERS Safety Report 9562043 (Version 2)
Quarter: 2013Q4

REPORT INFORMATION
  Report Type: Report from Study
  Country: FR (occurrence: FR)
  Receive Date: 20130927
  Receipt Date: 20131127
  Transmission Date: 20140711
  Serious: Yes (Death)
  Sender: FDA-Public Use
  Company Number: FR-ASTELLAS-2013EU008202

PATIENT
  Sex: Male

DRUGS (6)
  1. ENZALUTAMIDE [Suspect]
     Indication: PROSTATE CANCER
     Dosage: 160 MG, UID/QD
     Route: 048
     Dates: start: 20130628, end: 20130823
  2. XATRAL [Concomitant]
     Indication: URINARY TRACT DISORDER
     Dosage: UNK
     Route: 048
     Dates: end: 20130823
  3. COVERSYL                           /00790702/ [Concomitant]
     Indication: HYPERTENSION
     Dosage: UNK
     Route: 048
     Dates: end: 20130823
  4. LYRICA [Concomitant]
     Indication: PAIN
     Dosage: UNK
     Route: 048
     Dates: end: 20130823
  5. OXYCODONE [Concomitant]
     Indication: PAIN
     Dosage: 3 MG, UID/QD
     Route: 058
     Dates: end: 20130823
  6. SOLUMEDROL [Concomitant]
     Indication: PAIN
     Dosage: 80 MG, UNKNOWN/D
     Route: 042
     Dates: end: 20130823

REACTIONS (1)
  - Malignant neoplasm progression [Fatal]
